FAERS Safety Report 12437597 (Version 1)
Quarter: 2016Q2

REPORT INFORMATION
  Report Type: Spontaneous
  Country: BR (occurrence: BR)
  Receive Date: 20160606
  Receipt Date: 20160606
  Transmission Date: 20160815
  Serious: Yes (Other)
  Sender: FDA-Public Use
  Company Number: BR-BAYER-2016-106558

PATIENT
  Age: 53 Year
  Sex: Female

DRUGS (1)
  1. ASPIRINA PREVENT [Suspect]
     Active Substance: ASPIRIN
     Dosage: 1 DF, QD
     Route: 048
     Dates: end: 20160529

REACTIONS (7)
  - Varicose vein [None]
  - Blood cholesterol increased [None]
  - Diabetes mellitus [None]
  - Blood triglycerides increased [None]
  - Cardiac discomfort [Recovered/Resolved]
  - Therapeutic response unexpected [None]
  - Palpitations [Recovered/Resolved]

NARRATIVE: CASE EVENT DATE: 20160325
